FAERS Safety Report 9315165 (Version 5)
Quarter: 2013Q3

REPORT INFORMATION
  Report Type: Report from Study
  Country: DE (occurrence: DE)
  Receive Date: 20130529
  Receipt Date: 20130812
  Transmission Date: 20140515
  Serious: Yes (Death, Hospitalization)
  Sender: FDA-Public Use
  Company Number: DE-GLAXOSMITHKLINE-A0908817B

PATIENT
  Age: 64 Year
  Sex: Male
  Weight: 89 kg

DRUGS (3)
  1. OFATUMUMAB [Suspect]
     Indication: CHRONIC LYMPHOCYTIC LEUKAEMIA
     Route: 042
     Dates: start: 20100114, end: 20110113
  2. FENISTIL [Concomitant]
     Dates: start: 20100114, end: 20110113
  3. PARACETAMOL [Concomitant]
     Dates: start: 20100114, end: 20110113

REACTIONS (3)
  - Lymphadenopathy [Not Recovered/Not Resolved]
  - Mucosal inflammation [Recovered/Resolved]
  - Pneumonia [Fatal]
